FAERS Safety Report 25066422 (Version 3)
Quarter: 2025Q1

REPORT INFORMATION
  Report Type: Spontaneous
  Country: CN (occurrence: CN)
  Receive Date: 20250312
  Receipt Date: 20250326
  Transmission Date: 20250409
  Serious: No
  Sender: ARGENX BVBA
  Company Number: CN-ARGENX-2025-ARGX-CN002945

PATIENT

DRUGS (7)
  1. EFGARTIGIMOD ALFA [Interacting]
     Active Substance: EFGARTIGIMOD ALFA
     Indication: Myasthenia gravis crisis
     Route: 042
     Dates: start: 20231128
  2. EFGARTIGIMOD ALFA [Interacting]
     Active Substance: EFGARTIGIMOD ALFA
     Route: 042
     Dates: start: 20231202
  3. EFGARTIGIMOD ALFA [Interacting]
     Active Substance: EFGARTIGIMOD ALFA
     Dosage: 10 MG/KG, SECOND CYCLE
     Route: 042
  4. PREDNISONE [Suspect]
     Active Substance: PREDNISONE
     Indication: Product used for unknown indication
     Route: 065
  5. METHYLPREDNISOLONE [Suspect]
     Active Substance: METHYLPREDNISOLONE
     Indication: Product used for unknown indication
     Route: 042
  6. PYRIDOSTIGMINE [Suspect]
     Active Substance: PYRIDOSTIGMINE
     Indication: Product used for unknown indication
     Dosage: 60 MG, Q8HR
     Route: 065
  7. TACROLIMUS [Suspect]
     Active Substance: TACROLIMUS
     Indication: Product used for unknown indication
     Route: 065

REACTIONS (4)
  - Leukocytosis [Unknown]
  - Blood creatinine increased [Unknown]
  - Drug interaction [Unknown]
  - Off label use [Unknown]

NARRATIVE: CASE EVENT DATE: 20231128
